FAERS Safety Report 25313405 (Version 1)
Quarter: 2025Q2

REPORT INFORMATION
  Report Type: Spontaneous
  Country: US (occurrence: None)
  Receive Date: 20250512
  Receipt Date: 20250512
  Transmission Date: 20250716
  Serious: No
  Sender: FDA-CTU
  Company Number: None

PATIENT

DRUGS (2)
  1. OXYBUTYNIN [Suspect]
     Active Substance: OXYBUTYNIN
  2. BACLOFEN [Suspect]
     Active Substance: BACLOFEN

REACTIONS (4)
  - Oligodipsia [None]
  - Feeding disorder [None]
  - Vomiting [None]
  - Dyspepsia [None]
